FAERS Safety Report 8171030-1 (Version None)
Quarter: 2012Q1

REPORT INFORMATION
  Report Type: 
  Country: None (occurrence: None)
  Receive Date: 20120228
  Receipt Date: 20120221
  Transmission Date: 20120608
  Serious: Yes (Other)
  Sender: FDA-Public Use
  Company Number: FR-UCBSA-025033

PATIENT
  Age: 24 Year
  Sex: Male

DRUGS (8)
  1. KEPPRA [Suspect]
     Indication: EPILEPSY
     Route: 048
  2. ATARAX [Suspect]
     Indication: ANXIETY
     Route: 048
  3. ABILIFY [Suspect]
     Route: 048
     Dates: start: 20100407
  4. TRIMEPRAZINE TARTRATE [Suspect]
     Indication: INSOMNIA
     Dosage: 15 ORAL DROPS/DAY
     Route: 048
  5. TEGRETOL [Suspect]
     Indication: EPILEPSY
     Route: 048
  6. URBANYL [Suspect]
     Indication: EPILEPSY
     Route: 048
  7. LAMOTRIGINE [Suspect]
     Indication: EPILEPSY
     Route: 048
  8. TRANXENE [Suspect]
     Indication: ANXIETY
     Route: 048

REACTIONS (3)
  - BRADYCARDIA [None]
  - ABNORMAL BEHAVIOUR [None]
  - ELECTROCARDIOGRAM QT PROLONGED [None]
